FAERS Safety Report 19316761 (Version 3)
Quarter: 2021Q2

REPORT INFORMATION
  Report Type: Report from Study
  Country: US (occurrence: US)
  Receive Date: 20210527
  Receipt Date: 20210609
  Transmission Date: 20210717
  Serious: Yes (Hospitalization, Other)
  Sender: FDA-Public Use
  Company Number: US-JNJFOC-20210542670

PATIENT
  Age: 67 Year
  Sex: Female
  Weight: 129.1 kg

DRUGS (3)
  1. OPSUMIT [Suspect]
     Active Substance: MACITENTAN
     Indication: PULMONARY ARTERIAL HYPERTENSION
     Route: 048
     Dates: start: 20210517
  2. SELEXIPAG [Suspect]
     Active Substance: SELEXIPAG
     Indication: PULMONARY ARTERIAL HYPERTENSION
     Route: 048
     Dates: start: 2020
  3. SILDENAFIL CITRATE. [Concomitant]
     Active Substance: SILDENAFIL CITRATE

REACTIONS (6)
  - Dyspnoea [Unknown]
  - Arrhythmia [Unknown]
  - Hypotension [Unknown]
  - Pulmonary arterial pressure increased [Unknown]
  - Renal failure [Unknown]
  - Adverse event [Unknown]

NARRATIVE: CASE EVENT DATE: 20210501
